FAERS Safety Report 16212647 (Version 2)
Quarter: 2019Q2

REPORT INFORMATION
  Report Type: Spontaneous
  Country: KR (occurrence: KR)
  Receive Date: 20190418
  Receipt Date: 20190426
  Transmission Date: 20190711
  Serious: Yes (Life-Threatening)
  Sender: FDA-Public Use
  Company Number: KR-PFIZER INC-2019162972

PATIENT
  Age: 55 Year
  Sex: Male

DRUGS (19)
  1. METHYLPHENIDATE. [Suspect]
     Active Substance: METHYLPHENIDATE
     Dosage: UNK, (GRADUALLY TAPERED OVER 3 DAYS)
  2. BROMOCRIPTINE MESYLATE [Suspect]
     Active Substance: BROMOCRIPTINE MESYLATE
     Dosage: UNK, (GRADUALLY TAPERED OVER 3 DAYS)
  3. CARBIDOPA LEVODOPA [Suspect]
     Active Substance: CARBIDOPA\LEVODOPA
     Dosage: UNK, DAILY, (75/750MG, GRADUALLY INCREASED)
  4. BROMOCRIPTINE MESYLATE [Suspect]
     Active Substance: BROMOCRIPTINE MESYLATE
     Indication: COGNITIVE DISORDER
     Dosage: UNK, (LOW DOSAGE)
  5. VENLAFAXINE HCL [Suspect]
     Active Substance: VENLAFAXINE HYDROCHLORIDE
     Indication: COGNITIVE DISORDER
     Dosage: UNK, (LOW DOSAGE)
  6. VENLAFAXINE HCL [Suspect]
     Active Substance: VENLAFAXINE HYDROCHLORIDE
     Dosage: 75 MG, DAILY, (GRADUALLY INCREASED)
  7. VENLAFAXINE HCL [Suspect]
     Active Substance: VENLAFAXINE HYDROCHLORIDE
     Dosage: UNK, (GRADUALLY TAPERED OVER 3 DAYS)
  8. ROPINIROLE. [Suspect]
     Active Substance: ROPINIROLE
     Indication: COGNITIVE DISORDER
     Dosage: UNK, (LOW DOSAGE)
  9. CARBIDOPA LEVODOPA [Suspect]
     Active Substance: CARBIDOPA\LEVODOPA
     Indication: COGNITIVE DISORDER
     Dosage: UNK, (LOW DOSAGE)
  10. METHYLPHENIDATE. [Suspect]
     Active Substance: METHYLPHENIDATE
     Indication: COGNITIVE DISORDER
     Dosage: UNK, (LOW DOSAGE)
  11. METHYLPHENIDATE. [Suspect]
     Active Substance: METHYLPHENIDATE
     Dosage: 7.5 MG, DAILY, (GRADUALLY INCREASED)
  12. ROPINIROLE. [Suspect]
     Active Substance: ROPINIROLE
     Dosage: 1.5 MG, DAILY, (GRADUALLY INCREASED)
  13. TIANEPTINE SODIUM [Suspect]
     Active Substance: TIANEPTINE SODIUM
     Dosage: UNK, (GRADUALLY TAPERED OVER 3 DAYS)
  14. NORMAL SALINE [Concomitant]
     Active Substance: SODIUM CHLORIDE
     Indication: FLUID REPLACEMENT
     Dosage: UNK (INFUSION)
  15. CARBIDOPA LEVODOPA [Suspect]
     Active Substance: CARBIDOPA\LEVODOPA
     Dosage: UNK, (GRADUALLY TAPERED OVER 3 DAYS)
  16. TIANEPTINE SODIUM [Suspect]
     Active Substance: TIANEPTINE SODIUM
     Indication: COGNITIVE DISORDER
     Dosage: UNK, (LOW DOSAGE)
  17. ROPINIROLE. [Suspect]
     Active Substance: ROPINIROLE
     Dosage: UNK, (GRADUALLY TAPERED OVER 3 DAYS)
  18. TIANEPTINE SODIUM [Suspect]
     Active Substance: TIANEPTINE SODIUM
     Dosage: 37.5 MG, DAILY, (GRADUALLY INCREASED)
  19. BROMOCRIPTINE MESYLATE [Suspect]
     Active Substance: BROMOCRIPTINE MESYLATE
     Dosage: 7.5 MG, DAILY, (GRADUALLY INCREASED)

REACTIONS (2)
  - Stress cardiomyopathy [Recovered/Resolved]
  - Serotonin syndrome [Recovered/Resolved]
